FAERS Safety Report 9625547 (Version 2)
Quarter: 2014Q2

REPORT INFORMATION
  Report Type: Spontaneous
  Country: MX (occurrence: MX)
  Receive Date: 20131016
  Receipt Date: 20140521
  Transmission Date: 20141212
  Serious: Yes (Death, Life-Threatening, Hospitalization, Other)
  Sender: FDA-Public Use
  Company Number: PHHY2013MX115698

PATIENT
  Age: 89 Year
  Sex: Female

DRUGS (8)
  1. EXELON PATCH [Suspect]
     Indication: DEMENTIA ALZHEIMER^S TYPE
     Dosage: 4 MG, DAILY
     Route: 062
     Dates: start: 20130112, end: 20130212
  2. EXELON PATCH [Suspect]
     Dosage: 9.5 MG, DAILY
     Route: 062
     Dates: start: 20130112, end: 20130506
  3. STALEVO [Suspect]
     Dosage: 4 DF, UNK
     Dates: start: 201302
  4. PAXIL//PAROXETINE HYDROCHLORIDE [Concomitant]
     Indication: DEPRESSION
     Dosage: 1 DF, UNK
     Dates: start: 200510
  5. SERC [Concomitant]
     Dosage: 2 DF, UNK
     Dates: start: 201301
  6. LEVOTIROXINA [Concomitant]
     Indication: THYROID DISORDER
     Dosage: 0.5 DF, UNK
     Dates: start: 200710
  7. JANUVIA [Concomitant]
     Indication: SENILE DEMENTIA
     Dosage: 1 DF, UNK
  8. APROVEL [Concomitant]
     Dosage: 0.5 DF, UNK
     Dates: start: 200505

REACTIONS (9)
  - Cerebrovascular accident [Fatal]
  - Paralysis [Fatal]
  - Speech disorder [Fatal]
  - Disorientation [Fatal]
  - Cardiac arrest [Fatal]
  - Blood glucose increased [Not Recovered/Not Resolved]
  - Loss of consciousness [Not Recovered/Not Resolved]
  - Myocardial infarction [Unknown]
  - Feeling abnormal [Unknown]
